FAERS Safety Report 6551457-1 (Version None)
Quarter: 2010Q1

REPORT INFORMATION
  Report Type: 
  Country: None (occurrence: None)
  Receive Date: 20100126
  Receipt Date: 20100118
  Transmission Date: 20100710
  Serious: Yes (Death, Other)
  Sender: FDA-Public Use
  Company Number: HR-MILLENNIUM PHARMACEUTICALS, INC.-2009-02376

PATIENT

DRUGS (2)
  1. VELCADE [Suspect]
     Indication: MULTIPLE MYELOMA
     Dosage: 1.3 MG/M2, UNK
     Dates: start: 20081211, end: 20090507
  2. DEXAMETHASONE [Concomitant]

REACTIONS (2)
  - MULTIPLE MYELOMA [None]
  - NEUROPATHY PERIPHERAL [None]
